FAERS Safety Report 4573033-2 (Version None)
Quarter: 2005Q1

REPORT INFORMATION
  Report Type: 
  Country: None (occurrence: None)
  Receive Date: 20050204
  Receipt Date: 20050112
  Transmission Date: 20050727
  Serious: Yes (Life-Threatening, Hospitalization)
  Sender: FDA-Public Use
  Company Number: 6012633

PATIENT
  Age: 63 Year
  Sex: Female

DRUGS (2)
  1. DOLO-NERVOBION (DICLOFENAC SODIUM) [Suspect]
     Indication: PAIN
     Dosage: 50 MG ORAL
     Route: 048
     Dates: start: 20041101, end: 20041109
  2. ACETAMINOPHEN [Concomitant]

REACTIONS (1)
  - HAEMORRHAGE INTRACRANIAL [None]
